FAERS Safety Report 6359279-1 (Version None)
Quarter: 2009Q3

REPORT INFORMATION
  Report Type: 
  Country: None (occurrence: None)
  Receive Date: 20090917
  Receipt Date: 20090817
  Transmission Date: 20100115
  Serious: No
  Sender: FDA-Public Use
  Company Number: US-BAYER-200925067NA

PATIENT
  Age: 20 Year
  Sex: Female
  Weight: 74 kg

DRUGS (3)
  1. MIRENA [Suspect]
     Indication: CONTRACEPTION
     Dosage: AS USED: 20 ?G
     Route: 015
     Dates: start: 20090619, end: 20090625
  2. COREG [Concomitant]
     Indication: HYPERTENSION
     Route: 048
     Dates: start: 20090514
  3. ENALAPRIL MALEATE [Concomitant]
     Route: 048
     Dates: start: 20090514

REACTIONS (1)
  - INTRA-UTERINE CONTRACEPTIVE DEVICE EXPELLED [None]
